FAERS Safety Report 15955740 (Version 1)
Quarter: 2019Q1

REPORT INFORMATION
  Report Type: Spontaneous
  Country: US (occurrence: US)
  Receive Date: 20190212
  Receipt Date: 20190212
  Transmission Date: 20190417
  Serious: No
  Sender: FDA-Public Use
  Company Number: None

PATIENT
  Age: 54 Year
  Sex: Female
  Weight: 68 kg

DRUGS (2)
  1. ENTYVIO [Suspect]
     Active Substance: VEDOLIZUMAB
     Indication: RECTAL HAEMORRHAGE
     Dosage: 300 MG WK 0,2,6, THEN Q8W; INTRAVENOUS?
     Route: 042
     Dates: start: 20190212, end: 20190212
  2. ENTYVIO [Suspect]
     Active Substance: VEDOLIZUMAB
     Indication: COLITIS ULCERATIVE
     Dosage: 300 MG WK 0,2,6, THEN Q8W; INTRAVENOUS?
     Route: 042
     Dates: start: 20190212, end: 20190212

REACTIONS (4)
  - Dyspnoea [None]
  - Chest discomfort [None]
  - General symptom [None]
  - Pruritus [None]

NARRATIVE: CASE EVENT DATE: 20190212
